FAERS Safety Report 6691141-7 (Version None)
Quarter: 2010Q2

REPORT INFORMATION
  Report Type: 
  Country: None (occurrence: None)
  Receive Date: 20100422
  Receipt Date: 20100413
  Transmission Date: 20101027
  Serious: No
  Sender: FDA-Public Use
  Company Number: US-BIOGENIDEC-2010BI012847

PATIENT
  Sex: Male

DRUGS (1)
  1. TYSABRI [Suspect]
     Indication: MULTIPLE SCLEROSIS
     Route: 042
     Dates: start: 20070823

REACTIONS (4)
  - BALANCE DISORDER [None]
  - MUSCLE CONTRACTIONS INVOLUNTARY [None]
  - SENSATION OF HEAVINESS [None]
  - SENSORY DISTURBANCE [None]
